FAERS Safety Report 9565671 (Version 1)
Quarter: 2013Q3

REPORT INFORMATION
  Report Type: Spontaneous
  Country: CN (occurrence: CN)
  Receive Date: 20130930
  Receipt Date: 20130930
  Transmission Date: 20140515
  Serious: Yes (Other)
  Sender: FDA-Public Use
  Company Number: CN-BAYER-2013-114650

PATIENT
  Age: 47 Year
  Sex: Male

DRUGS (2)
  1. GLUCOBAY [Suspect]
     Dosage: 50 MG, TID
     Route: 048
     Dates: start: 20120919
  2. GLUCOBAY [Suspect]
     Dosage: 200 MG, TID

REACTIONS (1)
  - Diabetes mellitus inadequate control [Not Recovered/Not Resolved]
